FAERS Safety Report 7503593-0 (Version None)
Quarter: 2011Q1

REPORT INFORMATION
  Report Type: 
  Country: None (occurrence: None)
  Receive Date: 20110322
  Receipt Date: 20110105
  Transmission Date: 20110831
  Serious: Yes (Hospitalization)
  Sender: FDA-Public Use
  Company Number: UTC-004023

PATIENT
  Age: 42 Year
  Sex: Female

DRUGS (2)
  1. REVATIO [Concomitant]
  2. TYVASO [Suspect]
     Dosage: 216 MCG (54 MCG, 4 IN 1 D), INHALATION
     Route: 055
     Dates: start: 20101206

REACTIONS (3)
  - SYNCOPE [None]
  - FATIGUE [None]
  - THROAT IRRITATION [None]
